FAERS Safety Report 13549814 (Version 1)
Quarter: 2017Q2

REPORT INFORMATION
  Report Type: Spontaneous
  Country: US (occurrence: US)
  Receive Date: 20170515
  Receipt Date: 20170515
  Transmission Date: 20170830
  Serious: Yes (Other)
  Sender: FDA-Public Use
  Company Number: None

PATIENT
  Age: 44 Year
  Sex: Female

DRUGS (2)
  1. IBRANCE [Suspect]
     Active Substance: PALBOCICLIB
     Indication: METASTASES TO BONE
     Dosage: 100MG DAILY FOR 21 DAYS EVERY 28 DAYS ORALLY
     Route: 048
     Dates: start: 20160418, end: 20170417
  2. IBRANCE [Suspect]
     Active Substance: PALBOCICLIB
     Indication: BREAST CANCER FEMALE
     Dosage: 100MG DAILY FOR 21 DAYS EVERY 28 DAYS ORALLY
     Route: 048
     Dates: start: 20160418, end: 20170417

REACTIONS (2)
  - White blood cell count decreased [None]
  - Therapy cessation [None]
